FAERS Safety Report 4896514-0 (Version None)
Quarter: 2006Q1

REPORT INFORMATION
  Report Type: 
  Country: None (occurrence: None)
  Receive Date: 20060131
  Receipt Date: 20050411
  Transmission Date: 20060701
  Serious: Yes (Hospitalization)
  Sender: FDA-Public Use
  Company Number: JP-GLAXOSMITHKLINE-B0378000A

PATIENT
  Age: 47 Year
  Sex: Male
  Weight: 93 kg

DRUGS (9)
  1. ORACEF [Suspect]
     Indication: GINGIVITIS
     Dosage: 250MG THREE TIMES PER DAY
     Route: 048
     Dates: start: 20050323, end: 20050325
  2. LOXONIN [Suspect]
     Dosage: 3U PER DAY
     Route: 048
     Dates: start: 20050323, end: 20050325
  3. KENTAN [Suspect]
     Dosage: 3U PER DAY
     Route: 048
     Dates: start: 20050323, end: 20050325
  4. MYONAL [Suspect]
     Dosage: 3U PER DAY
     Route: 048
     Dates: start: 20050323, end: 20050325
  5. ETHENZAMIDE [Suspect]
     Route: 048
  6. ACETAMINOPHEN [Suspect]
     Route: 048
  7. SELBEX [Concomitant]
     Route: 048
  8. CYANOCOBALAMIN [Concomitant]
     Route: 065
  9. UNKNOWN [Concomitant]
     Route: 048

REACTIONS (4)
  - HEPATIC FUNCTION ABNORMAL [None]
  - JAUNDICE [None]
  - NAUSEA [None]
  - PYREXIA [None]
